FAERS Safety Report 8047538-6 (Version None)
Quarter: 2012Q1

REPORT INFORMATION
  Report Type: 
  Country: None (occurrence: None)
  Receive Date: 20120116
  Receipt Date: 20120112
  Transmission Date: 20120608
  Serious: Yes (Hospitalization)
  Sender: FDA-Public Use
  Company Number: US-GLAXOSMITHKLINE-A0785918A

PATIENT
  Age: 55 Year
  Sex: Female
  Weight: 61.4 kg

DRUGS (9)
  1. METFORMIN HCL [Concomitant]
     Dates: start: 20061201
  2. CHANTIX [Concomitant]
  3. AVANDIA [Suspect]
     Indication: TYPE 2 DIABETES MELLITUS
     Dosage: 4MG TWICE PER DAY
     Route: 048
     Dates: start: 20061219, end: 20070521
  4. ZANTAC [Concomitant]
  5. LISINOPRIL [Concomitant]
  6. THEOPHYLLINE [Concomitant]
  7. LIPITOR [Concomitant]
  8. ATIVAN [Concomitant]
  9. NEXIUM [Concomitant]

REACTIONS (1)
  - ACUTE MYOCARDIAL INFARCTION [None]
